FAERS Safety Report 5495456-X (Version None)
Quarter: 2007Q4

REPORT INFORMATION
  Report Type: 
  Country: None (occurrence: None)
  Receive Date: 20071023
  Receipt Date: 20071008
  Transmission Date: 20080405
  Serious: Yes (Other)
  Sender: FDA-Public Use
  Company Number: 019685

PATIENT
  Age: 73 Year
  Sex: Female

DRUGS (10)
  1. AMIODARONE HCL [Suspect]
     Dosage: 200 MG, QD
     Dates: start: 20060515
  2. GEMFIBROZIL [Suspect]
     Dosage: 600 MG, BID, ORAL
     Route: 048
     Dates: start: 20040416, end: 20060316
  3. GLYBURIDE [Concomitant]
  4. METFORMIN HCL [Concomitant]
  5. LEVOTHYROXINE SODIUM [Concomitant]
  6. LISINOPRIL [Concomitant]
  7. METOPROLOL TARTRATE [Concomitant]
  8. FUROSEMIDE [Concomitant]
  9. ALENDRONIC ACID (ALENDRONIC ACID) [Concomitant]
  10. ACETYLSALICYLIC ACID SRT [Concomitant]

REACTIONS (5)
  - ALANINE AMINOTRANSFERASE INCREASED [None]
  - ASPARTATE AMINOTRANSFERASE INCREASED [None]
  - BLOOD ALKALINE PHOSPHATASE INCREASED [None]
  - CREATINE PHOSPHOKINASE DECREASED [None]
  - DRUG INTERACTION [None]
